FAERS Safety Report 8956660 (Version 1)
Quarter: 2012Q4

REPORT INFORMATION
  Report Type: 
  Country: US (occurrence: US)
  Receive Date: 20121210
  Receipt Date: 20121210
  Transmission Date: 20130627
  Serious: Yes (Life-Threatening, Hospitalization)
  Sender: FDA-Public Use
  Company Number: US-SHIRE-ALL1-2012-06045

PATIENT
  Age: 22 Year
  Sex: Female

DRUGS (1)
  1. FIRAZYR [Suspect]
     Indication: HEREDITARY ANGIOEDEMA
     Dosage: 30 mg, Unknown
     Route: 058
     Dates: start: 20121129, end: 20121206

REACTIONS (2)
  - Loss of consciousness [Unknown]
  - Swollen tongue [Recovering/Resolving]
